FAERS Safety Report 4445250-3 (Version None)
Quarter: 2004Q3

REPORT INFORMATION
  Report Type: 
  Country: None (occurrence: None)
  Receive Date: 20040730
  Receipt Date: 20040712
  Transmission Date: 20050211
  Serious: No
  Sender: FDA-Public Use
  Company Number: PHEH2004US05786

PATIENT
  Age: 61 Year
  Sex: Female
  Weight: 59.4 kg

DRUGS (6)
  1. GLEEVEC [Suspect]
     Indication: GASTROINTESTINAL STROMAL TUMOUR
     Dosage: 400 MG, QD
     Dates: start: 20040219
  2. NORVASC [Concomitant]
  3. HORMONES REPLACEMENT THERAPY (HORMONES) [Concomitant]
  4. PRILOSEC [Concomitant]
  5. LASIX /SCH/(FUROSEMIDE SODIUM) [Concomitant]
  6. POTASSIUM [Concomitant]

REACTIONS (6)
  - ALOPECIA [None]
  - DRY SKIN [None]
  - HYPOAESTHESIA [None]
  - NAIL DISCOLOURATION [None]
  - OEDEMA [None]
  - RASH PRURITIC [None]
